FAERS Safety Report 14543138 (Version 2)
Quarter: 2018Q1

REPORT INFORMATION
  Report Type: Report from Study
  Country: US (occurrence: US)
  Receive Date: 20180216
  Receipt Date: 20180314
  Transmission Date: 20180509
  Serious: Yes (Hospitalization, Other)
  Sender: FDA-Public Use
  Company Number: US-TAKEDA-2018TUS002328

PATIENT
  Sex: Male

DRUGS (1)
  1. PONATINIB [Suspect]
     Active Substance: PONATINIB
     Indication: ACUTE MYELOID LEUKAEMIA
     Dosage: 45 MG, QD
     Route: 048
     Dates: start: 20180115

REACTIONS (12)
  - Diarrhoea [Unknown]
  - Headache [Unknown]
  - Constipation [Unknown]
  - Off label use [Unknown]
  - Neoplasm progression [Unknown]
  - Dysphonia [Unknown]
  - Pneumonia [Unknown]
  - Peripheral swelling [Unknown]
  - Neuropathy peripheral [Unknown]
  - Neck pain [Unknown]
  - Abdominal pain [Unknown]
  - Chest pain [Unknown]
